FAERS Safety Report 12949599 (Version 1)
Quarter: 2016Q4

REPORT INFORMATION
  Report Type: Spontaneous
  Country: US (occurrence: US)
  Receive Date: 20161117
  Receipt Date: 20161117
  Transmission Date: 20170207
  Serious: Yes (Death, Other)
  Sender: FDA-Public Use
  Company Number: US-SYNTHON BV-NL01PV16_42359

PATIENT
  Age: 5 Decade
  Sex: Male

DRUGS (4)
  1. FLONASE [Concomitant]
     Active Substance: FLUTICASONE PROPIONATE
     Dosage: UNK
  2. ZOLPIDEM [Suspect]
     Active Substance: ZOLPIDEM\ZOLPIDEM TARTRATE
     Dosage: 5 MG, UNK
  3. ALPRAZOLAM. [Suspect]
     Active Substance: ALPRAZOLAM
     Indication: INSOMNIA
     Dosage: 5 MG, UNK
  4. ATORVASTATIN [Suspect]
     Active Substance: ATORVASTATIN
     Indication: HYPERLIPIDAEMIA
     Dosage: 10 MG, UNK

REACTIONS (9)
  - Depression [Unknown]
  - Eczema [Unknown]
  - Hypoacusis [Unknown]
  - Abnormal behaviour [Unknown]
  - Paranoia [Unknown]
  - Myalgia [Unknown]
  - Amnesia [Unknown]
  - Completed suicide [Fatal]
  - Personality change [Unknown]
